FAERS Safety Report 24635179 (Version 1)
Quarter: 2024Q4

REPORT INFORMATION
  Report Type: Spontaneous
  Country: CN (occurrence: CN)
  Receive Date: 20241119
  Receipt Date: 20241119
  Transmission Date: 20250115
  Serious: Yes (Other)
  Sender: BAXTER
  Company Number: None

PATIENT
  Age: 70 Year
  Sex: Male
  Weight: 65 kg

DRUGS (2)
  1. MANNITOL [Suspect]
     Active Substance: MANNITOL
     Indication: Brain herniation
     Dosage: 100 ML INJECTION, THREE TIME A DAY (EVERY 8 HOURS )
     Route: 041
     Dates: start: 20241024, end: 20241106
  2. MANNITOL [Suspect]
     Active Substance: MANNITOL
     Indication: Intracranial pressure increased

REACTIONS (2)
  - Renal impairment [Recovering/Resolving]
  - Blood creatinine increased [Recovering/Resolving]

NARRATIVE: CASE EVENT DATE: 20241106
